FAERS Safety Report 9002309 (Version 2)
Quarter: 2014Q1

REPORT INFORMATION
  Report Type: Spontaneous
  Country: US (occurrence: US)
  Receive Date: 20130107
  Receipt Date: 20140212
  Transmission Date: 20141002
  Serious: Yes (Other)
  Sender: FDA-Public Use
  Company Number: US-PFIZER INC-2013002846

PATIENT
  Age: 50 Year
  Sex: Male
  Weight: 125 kg

DRUGS (31)
  1. LYRICA [Suspect]
     Indication: INTERVERTEBRAL DISC PROTRUSION
     Dosage: 150 MG, 2X/DAY
     Route: 048
     Dates: start: 2005
  2. CELEBREX [Suspect]
     Indication: INTERVERTEBRAL DISC PROTRUSION
     Dosage: 200 MG, 1X/DAY
     Route: 048
     Dates: start: 1999
  3. CELEBREX [Suspect]
     Indication: INFLAMMATION
     Dosage: 200 MG, UNK
     Route: 048
     Dates: start: 2005
  4. CELEBREX [Suspect]
     Dosage: 200 MG, AS NEEDED
     Route: 048
  5. LOPID [Suspect]
     Indication: BLOOD CHOLESTEROL INCREASED
     Dosage: 600 MG, DAILY AT NIGHT
     Route: 048
  6. LOPID [Suspect]
     Indication: BLOOD TRIGLYCERIDES INCREASED
  7. FLONASE [Concomitant]
     Indication: DYSPNOEA
     Dosage: 50 UG, DAILY
  8. FLONASE [Concomitant]
     Indication: ASTHMA
     Dosage: UNK, 1X/DAY (1 IN MORNING)
  9. FLONASE [Concomitant]
     Indication: CHRONIC OBSTRUCTIVE PULMONARY DISEASE
  10. METOPROLOL [Concomitant]
     Indication: CARDIAC DISORDER
     Dosage: 25 MG, 2X/DAY
     Route: 048
  11. METOPROLOL [Concomitant]
     Indication: BLOOD PRESSURE ABNORMAL
  12. ACETYLSALICYLIC ACID [Concomitant]
     Indication: CARDIAC DISORDER
     Dosage: 300 MG, DAILY
     Route: 048
  13. ACETYLSALICYLIC ACID [Concomitant]
     Dosage: 325MG X1 AT NIGHT
  14. TAMSULOSIN [Concomitant]
     Indication: MICTURITION DISORDER
     Dosage: 0.40 MG, DAILY
     Route: 048
  15. LISINOPRIL [Concomitant]
     Indication: CARDIAC DISORDER
     Dosage: 10 MG, DAILY (1 IN MORNING)
     Route: 048
  16. CITALOPRAM [Concomitant]
     Indication: DEPRESSION
     Dosage: 40 MG, DAILY (1 IN MORNING)
     Route: 048
  17. ZOLPIDEM [Concomitant]
     Indication: SLEEP DISORDER
     Dosage: 10 MG, DAILY AT NIGHT
     Route: 048
  18. ADVAIR DISKUS [Concomitant]
     Indication: DYSPNOEA
     Dosage: 250/50 UG,2X/DAY
  19. ADVAIR DISKUS [Concomitant]
     Indication: ASTHMA
  20. ADVAIR DISKUS [Concomitant]
     Indication: CHRONIC OBSTRUCTIVE PULMONARY DISEASE
  21. ALBUTEROL [Concomitant]
     Dosage: 90 UG, AS NEEDED
  22. PSEUDOEPHEDRINE [Concomitant]
     Dosage: UNK, (12-HOUR X 1 AT NIGHT)
  23. LORATADINE/PSEUDOEPHEDRINE SULFATE [Concomitant]
     Dosage: UNK, 1X/DAY (1 IN MORNING)
  24. HYDROCODONE W/ACETAMINOPHEN [Concomitant]
     Dosage: 10 /325, AS NEEDED
  25. NIACIN [Concomitant]
     Dosage: 1000 MG, 2X/DAY (2 @ NIGHT)
  26. TIZANIDINE [Concomitant]
     Dosage: 4 MG, 3X/DAY OR PRN
  27. TYLENOL [Concomitant]
     Indication: ARTHRITIS
     Dosage: 650 MG, 2X/DAY OR PRN
  28. VITAMIN C [Concomitant]
     Dosage: 1000 MG, 1X/DAY (1 IN MORNING)
  29. DUONEB [Concomitant]
     Dosage: UNK, AS NEEDED (SOLUTION PRN)
  30. GLUCOSAMINE HYDROCHLORIDE/CHONDROITIN SULFATE [Concomitant]
     Dosage: 1500/1250 X 2 A DAY
  31. MULTIVITAMIN ^LAPPE^ [Concomitant]

REACTIONS (10)
  - Rib fracture [Unknown]
  - Wrist fracture [Unknown]
  - Balance disorder [Unknown]
  - Fall [Unknown]
  - Head injury [Unknown]
  - Impaired work ability [Unknown]
  - Skeletal injury [Unknown]
  - Musculoskeletal chest pain [Unknown]
  - Joint injury [Unknown]
  - Gait disturbance [Unknown]
